FAERS Safety Report 17498121 (Version 1)
Quarter: 2020Q1

REPORT INFORMATION
  Report Type: Spontaneous
  Country: IE (occurrence: IE)
  Receive Date: 20200304
  Receipt Date: 20200304
  Transmission Date: 20200409
  Serious: Yes (Other)
  Sender: FDA-Public Use
  Company Number: IE-JNJFOC-20200232899

PATIENT
  Sex: Male

DRUGS (1)
  1. STELARA [Suspect]
     Active Substance: USTEKINUMAB
     Indication: PSORIASIS
     Route: 058

REACTIONS (7)
  - Tendonitis [Unknown]
  - Arthralgia [Unknown]
  - Drug ineffective [Unknown]
  - Femur fracture [Unknown]
  - Loss of consciousness [Unknown]
  - Asthenia [Unknown]
  - Hip arthroplasty [Unknown]
